FAERS Safety Report 19209643 (Version 4)
Quarter: 2022Q1

REPORT INFORMATION
  Report Type: Report from Study
  Country: CA (occurrence: CA)
  Receive Date: 20210503
  Receipt Date: 20220120
  Transmission Date: 20220423
  Serious: Yes (Other)
  Sender: FDA-Public Use
  Company Number: CA-JNJFOC-20210458894

PATIENT
  Age: 44 Year
  Sex: Male

DRUGS (14)
  1. SPORANOX [Suspect]
     Active Substance: ITRACONAZOLE
     Indication: Product used for unknown indication
     Route: 065
  2. SPORANOX [Suspect]
     Active Substance: ITRACONAZOLE
     Route: 065
  3. SPORANOX [Suspect]
     Active Substance: ITRACONAZOLE
     Route: 065
  4. RABEPRAZOLE [Suspect]
     Active Substance: RABEPRAZOLE
     Indication: Product used for unknown indication
     Dosage: UNKNOWN DOSE AND FREQUENCY
     Route: 048
  5. ATIVAN [Suspect]
     Active Substance: LORAZEPAM
     Indication: Product used for unknown indication
     Dosage: UNKNOWN DOSE AND FREQUENCY
     Route: 065
  6. CITALOPRAM HYDROBROMIDE [Suspect]
     Active Substance: CITALOPRAM HYDROBROMIDE
     Indication: Product used for unknown indication
     Route: 065
  7. MEPOLIZUMAB [Suspect]
     Active Substance: MEPOLIZUMAB
     Indication: Asthma
     Route: 042
  8. PREDNISONE [Suspect]
     Active Substance: PREDNISONE
     Indication: Asthma
     Route: 065
  9. ALBUTEROL SULFATE [Suspect]
     Active Substance: ALBUTEROL SULFATE
     Indication: Asthma
     Dosage: UNKNOWN DOSE AND FREQUENCY
     Route: 065
  10. SYMBICORT [Suspect]
     Active Substance: BUDESONIDE\FORMOTEROL FUMARATE DIHYDRATE
     Indication: Product used for unknown indication
     Route: 065
  11. SYMBICORT [Suspect]
     Active Substance: BUDESONIDE\FORMOTEROL FUMARATE DIHYDRATE
     Route: 065
  12. CETIRIZINE [Suspect]
     Active Substance: CETIRIZINE HYDROCHLORIDE
     Indication: Product used for unknown indication
     Route: 065
  13. VENTOLIN [Suspect]
     Active Substance: ALBUTEROL SULFATE
     Indication: Product used for unknown indication
     Route: 065
  14. AZITHROMYCIN [Concomitant]
     Active Substance: AZITHROMYCIN
     Route: 065

REACTIONS (33)
  - Upper respiratory tract infection [Unknown]
  - Sinus congestion [Unknown]
  - Cough [Unknown]
  - Rash [Unknown]
  - Sinusitis [Unknown]
  - Chest pain [Unknown]
  - Upper respiratory fungal infection [Unknown]
  - Dyspnoea [Unknown]
  - Full blood count abnormal [Unknown]
  - Bronchiectasis [Unknown]
  - Lymphadenopathy [Unknown]
  - Chest discomfort [Unknown]
  - Obstructive airways disorder [Unknown]
  - Respiratory disorder [Unknown]
  - Secretion discharge [Unknown]
  - Weight increased [Unknown]
  - Tendon disorder [Unknown]
  - Condition aggravated [Unknown]
  - Anxiety [Unknown]
  - Bronchial disorder [Unknown]
  - Bronchopulmonary aspergillosis allergic [Unknown]
  - Folliculitis [Unknown]
  - Forced expiratory volume [Unknown]
  - Hyperventilation [Unknown]
  - Lung disorder [Unknown]
  - Mycobacterial infection [Unknown]
  - Parathyroid gland enlargement [Unknown]
  - Haemoptysis [Unknown]
  - Asthma [Unknown]
  - Sleep disorder due to a general medical condition [Unknown]
  - Wheezing [Unknown]
  - Loss of personal independence in daily activities [Unknown]
  - Therapeutic product effect incomplete [Unknown]
